FAERS Safety Report 7068669-3 (Version None)
Quarter: 2010Q4

REPORT INFORMATION
  Report Type: 
  Country: None (occurrence: None)
  Receive Date: 20101028
  Receipt Date: 20101026
  Transmission Date: 20110411
  Serious: Yes (Death, Hospitalization)
  Sender: FDA-Public Use
  Company Number: US-BRISTOL-MYERS SQUIBB COMPANY-15353543

PATIENT
  Age: 61 Year
  Sex: Female

DRUGS (5)
  1. ABILIFY [Suspect]
     Dates: start: 20100309
  2. ZYPREXA [Suspect]
     Indication: BIPOLAR DISORDER
     Dosage: TAB;5MG EACH MRNG
     Route: 065
     Dates: start: 20100816
  3. LITHIUM [Concomitant]
  4. LORAZEPAM [Concomitant]
  5. WELLBUTRIN [Concomitant]

REACTIONS (2)
  - BIPOLAR DISORDER [None]
  - PULMONARY EMBOLISM [None]
